FAERS Safety Report 10168358 (Version 1)
Quarter: 2014Q2

REPORT INFORMATION
  Report Type: Spontaneous
  Country: JP (occurrence: JP)
  Receive Date: 20140513
  Receipt Date: 20140513
  Transmission Date: 20141212
  Serious: Yes (Death, Hospitalization)
  Sender: FDA-Public Use
  Company Number: PHHY2014JP055289

PATIENT
  Age: 63 Year
  Sex: Male

DRUGS (5)
  1. METHOTREXATE [Suspect]
     Indication: RHEUMATOID ARTHRITIS
  2. TOCILIZUMAB [Interacting]
     Indication: RHEUMATOID ARTHRITIS
     Dosage: 8 MG/KG, EVERY 4 WEEKS
  3. PREDNISOLONE [Concomitant]
     Indication: RHEUMATOID ARTHRITIS
     Dosage: 7 MG, UNK
     Route: 048
  4. ETANERCEPT [Concomitant]
     Indication: RHEUMATOID ARTHRITIS
  5. ADALIMUMAB [Concomitant]
     Indication: RHEUMATOID ARTHRITIS

REACTIONS (12)
  - Pneumonia aspiration [Fatal]
  - Encephalopathy [Unknown]
  - Cognitive disorder [Unknown]
  - Muscular weakness [Unknown]
  - Communication disorder [Unknown]
  - Muscle rigidity [Unknown]
  - Disorientation [Unknown]
  - Dysphagia [Unknown]
  - Central nervous system lesion [Unknown]
  - Generalised tonic-clonic seizure [Unknown]
  - Encephalitis [Unknown]
  - Infection [Unknown]
